FAERS Safety Report 4853786-6 (Version None)
Quarter: 2005Q4

REPORT INFORMATION
  Report Type: 
  Country: None (occurrence: None)
  Receive Date: 20051212
  Receipt Date: 20051129
  Transmission Date: 20060501
  Serious: Yes (Other)
  Sender: FDA-Public Use
  Company Number: 2005161529

PATIENT
  Sex: Male
  Weight: 86.1834 kg

DRUGS (13)
  1. VIAGRA [Suspect]
     Indication: ILL-DEFINED DISORDER
     Dosage: 100 MG, PRN, ORAL
     Route: 048
     Dates: start: 19980101
  2. NEURONTIN [Suspect]
     Indication: NEUROPATHY
     Dosage: 600 MG (300 MG, 2 IN 1 D), ORAL
     Route: 048
  3. NORVASC [Suspect]
     Indication: HYPERTENSION
     Dosage: 5 MG (5 MG, 1 IN 1 D), ORAL
     Route: 048
     Dates: start: 20040101
  4. VERAPAMIL [Suspect]
     Indication: HYPERTENSION
     Dosage: 240 MG (240 MG, 1 IN 1 D)
  5. EFFEXOR [Concomitant]
  6. RISPERDAL [Concomitant]
  7. PREVACID [Concomitant]
  8. PREDNISONE [Concomitant]
  9. ALLEGRA [Concomitant]
  10. MULTIVITAMIN [Concomitant]
  11. CALCIUM WITH VITAMIN D (CALCIUM PHOSPHATE, CALCIUM SODIUM LACTATE, ERG [Concomitant]
  12. ASPIRIN [Concomitant]
  13. VITAMIN B12 [Concomitant]

REACTIONS (9)
  - BLOOD PRESSURE INCREASED [None]
  - CATARACT [None]
  - DRUG EFFECT DECREASED [None]
  - DRUG INEFFECTIVE [None]
  - HEARING IMPAIRED [None]
  - LUNG NEOPLASM MALIGNANT [None]
  - NEUROPATHY PERIPHERAL [None]
  - PHOTOPSIA [None]
  - WALDENSTROM'S MACROGLOBULINAEMIA [None]
